FAERS Safety Report 12943165 (Version 1)
Quarter: 2016Q4

REPORT INFORMATION
  Report Type: Spontaneous
  Country: US (occurrence: US)
  Receive Date: 20161115
  Receipt Date: 20161115
  Transmission Date: 20170207
  Serious: No
  Sender: FDA-Public Use
  Company Number: US-009507513-1611USA002110

PATIENT
  Sex: Female

DRUGS (1)
  1. NEXPLANON [Suspect]
     Active Substance: ETONOGESTREL
     Indication: CONTRACEPTION
     Dosage: 1 DF, UNK
     Route: 030
     Dates: end: 20161021

REACTIONS (6)
  - Complication associated with device [Recovered/Resolved]
  - Mood swings [Recovered/Resolved]
  - Depressed mood [Recovered/Resolved]
  - Device deployment issue [Recovered/Resolved]
  - Incorrect route of drug administration [Unknown]
  - Complication of device removal [Recovered/Resolved]
